FAERS Safety Report 9638154 (Version 1)
Quarter: 2013Q4

REPORT INFORMATION
  Report Type: Spontaneous
  Country: US (occurrence: None)
  Receive Date: 20131021
  Receipt Date: 20131021
  Transmission Date: 20140711
  Serious: No
  Sender: FDA-Public Use
  Company Number: None

PATIENT
  Age: 62 Year
  Sex: Female
  Weight: 39 kg

DRUGS (6)
  1. INVEGA [Suspect]
     Dosage: 3 MG (1 TAB), QHS / BEDTIME, ORAL
     Route: 048
     Dates: start: 20131015, end: 20131017
  2. LEVEAQUIN [Concomitant]
  3. REMERON [Concomitant]
  4. FLOMAX [Concomitant]
  5. DILANTIN [Concomitant]
  6. ZYPREXA [Concomitant]

REACTIONS (1)
  - Muscle spasms [None]
